FAERS Safety Report 8618081-8 (Version None)
Quarter: 2012Q3

REPORT INFORMATION
  Report Type: 
  Country: None (occurrence: None)
  Receive Date: 20120824
  Receipt Date: 20120423
  Transmission Date: 20120928
  Serious: No
  Sender: FDA-Public Use
  Company Number: US-ASTRAZENECA-2012SE26376

PATIENT
  Age: 43 Year
  Sex: Female
  Weight: 91.6 kg

DRUGS (4)
  1. SYMBICORT [Suspect]
     Dosage: 160/4.5 MCG, TWO PUFFS, TWO TIMES A DAY
     Route: 055
  2. SYMBICORT [Suspect]
     Dosage: 80/4.5 MCG, TWO PUFFS, TWO TIMES A DAY
     Route: 055
  3. ANTIBIOTIC [Concomitant]
     Indication: SINUSITIS
  4. SYMBICORT [Suspect]
     Indication: ASTHMA
     Dosage: 160/4.5 MCG, TWO PUFFS, TWO TIMES A DAY
     Route: 055

REACTIONS (3)
  - DRUG INEFFECTIVE [None]
  - SINUSITIS [None]
  - INTENTIONAL DRUG MISUSE [None]
